FAERS Safety Report 24310541 (Version 1)
Quarter: 2024Q3

REPORT INFORMATION
  Report Type: Spontaneous
  Country: US (occurrence: US)
  Receive Date: 20240912
  Receipt Date: 20240912
  Transmission Date: 20241017
  Serious: No
  Sender: ROCHE
  Company Number: US-ROCHE-10000075286

PATIENT
  Age: 69 Year
  Sex: Female
  Weight: 72.57 kg

DRUGS (14)
  1. XOLAIR [Suspect]
     Active Substance: OMALIZUMAB
     Indication: Lip swelling
     Dosage: FORMULATION: SHOT, 150 MG IN EACH ARM
     Route: 058
     Dates: start: 20240215, end: 20240215
  2. XOLAIR [Suspect]
     Active Substance: OMALIZUMAB
     Indication: Swollen tongue
  3. HYDROCHLOROTHIAZIDE [Concomitant]
     Active Substance: HYDROCHLOROTHIAZIDE
     Indication: Oedema peripheral
  4. AMLODIPINE [Concomitant]
     Active Substance: AMLODIPINE BESYLATE
     Indication: Hypertension
     Route: 048
  5. OXYBUTYNIN [Concomitant]
     Active Substance: OXYBUTYNIN\OXYBUTYNIN CHLORIDE
  6. PYRIDOSTIGMINE [Concomitant]
     Active Substance: PYRIDOSTIGMINE
     Indication: Myasthenia gravis
     Dosage: 3-4 TIMES A DAY
  7. POTASSIUM CITRATE [Concomitant]
     Active Substance: POTASSIUM CITRATE
     Indication: Myasthenia gravis
  8. CHOLECALCIFEROL [Concomitant]
     Active Substance: CHOLECALCIFEROL
     Indication: Myasthenia gravis
  9. GABAPENTIN [Concomitant]
     Active Substance: GABAPENTIN
     Indication: Neuralgia
     Dosage: 100 MG TABLETS, TWO IN MORNING, TWO MID DAY, AND THREE AT NIGHT
  10. SIMVASTATIN [Concomitant]
     Active Substance: SIMVASTATIN
     Indication: Blood cholesterol increased
     Dosage: AT NIGHT
  11. MONTELUKAST [Concomitant]
     Active Substance: MONTELUKAST SODIUM
     Indication: Hypersensitivity
     Dosage: AT NIGHT
  12. BAYER ASPIRIN [Concomitant]
     Active Substance: ASPIRIN
     Indication: Anticoagulant therapy
  13. TYLENOL 8 HR ARTHRITIS PAIN [Concomitant]
     Active Substance: ACETAMINOPHEN
     Indication: Arthritis
     Dosage: ONE AS NEEDED
  14. PROZAC [Concomitant]
     Active Substance: FLUOXETINE HYDROCHLORIDE
     Indication: Anxiety

REACTIONS (11)
  - Off label use [Unknown]
  - Urticaria [Recovered/Resolved]
  - Ulcer [Recovered/Resolved]
  - Gingival discomfort [Unknown]
  - Ear pain [Unknown]
  - Scar [Not Recovered/Not Resolved]
  - Skin disorder [Not Recovered/Not Resolved]
  - Pruritus [Recovered/Resolved]
  - Back pain [Unknown]
  - Herpes zoster [Recovered/Resolved]
  - Burning sensation [Unknown]

NARRATIVE: CASE EVENT DATE: 20240215
